FAERS Safety Report 10512754 (Version 1)
Quarter: 2014Q4

REPORT INFORMATION
  Report Type: Spontaneous
  Country: IT (occurrence: IT)
  Receive Date: 20141013
  Receipt Date: 20141013
  Transmission Date: 20150528
  Serious: Yes (Other)
  Sender: FDA-Public Use
  Company Number: IT-ROCHE-1471543

PATIENT
  Age: 71 Year
  Sex: Male
  Weight: 75 kg

DRUGS (1)
  1. AVASTIN [Suspect]
     Active Substance: BEVACIZUMAB
     Indication: RECTAL CANCER
     Route: 065
     Dates: start: 20120222, end: 20140910

REACTIONS (4)
  - Azotaemia [Unknown]
  - Creatine urine increased [Unknown]
  - Hyperuricaemia [Unknown]
  - Proteinuria [Unknown]

NARRATIVE: CASE EVENT DATE: 20140914
